FAERS Safety Report 6511830-4 (Version None)
Quarter: 2009Q4

REPORT INFORMATION
  Report Type: 
  Country: None (occurrence: None)
  Receive Date: 20091222
  Receipt Date: 20091215
  Transmission Date: 20100525
  Serious: Yes (Hospitalization)
  Sender: FDA-Public Use
  Company Number: PHHO2009JP06183

PATIENT
  Sex: Female
  Weight: 55 kg

DRUGS (2)
  1. AMN107 AMN+CAP [Suspect]
     Indication: GASTROINTESTINAL STROMAL TUMOUR
     Dosage: 400 MG, BID
     Route: 048
     Dates: start: 20090414
  2. THYRADIN S [Concomitant]

REACTIONS (3)
  - CHEST PAIN [None]
  - ELECTROCARDIOGRAM QT PROLONGED [None]
  - VOMITING [None]
